FAERS Safety Report 6070170-0 (Version None)
Quarter: 2009Q1

REPORT INFORMATION
  Report Type: 
  Country: None (occurrence: None)
  Receive Date: 20090204
  Receipt Date: 20090129
  Transmission Date: 20090719
  Serious: Yes (Hospitalization)
  Sender: FDA-Public Use
  Company Number: DSA_33131_2009

PATIENT
  Age: 60 Year
  Sex: Female

DRUGS (1)
  1. DICLOFENAC (DICLOFENAC) [Suspect]
     Indication: PAIN
     Dosage: (100 MG QD)

REACTIONS (4)
  - HAEMOGLOBIN DECREASED [None]
  - PLATELET AGGREGATION ABNORMAL [None]
  - SPONTANEOUS HAEMATOMA [None]
  - WHITE BLOOD CELL COUNT INCREASED [None]
